FAERS Safety Report 6020998-8 (Version None)
Quarter: 2008Q4

REPORT INFORMATION
  Report Type: 
  Country: None (occurrence: None)
  Receive Date: 20081229
  Receipt Date: 20081107
  Transmission Date: 20090506
  Serious: No
  Sender: FDA-Public Use
  Company Number: US-BAYER-200838578NA

PATIENT
  Age: 32 Year
  Sex: Female

DRUGS (1)
  1. MIRENA [Suspect]
     Indication: CONTRACEPTION
     Route: 015
     Dates: start: 20050101, end: 20081013

REACTIONS (5)
  - ABDOMINAL PAIN LOWER [None]
  - DYSPAREUNIA [None]
  - PROCEDURAL PAIN [None]
  - STAPHYLOCOCCAL INFECTION [None]
  - VAGINAL HAEMORRHAGE [None]
